FAERS Safety Report 14588708 (Version 3)
Quarter: 2018Q1

REPORT INFORMATION
  Report Type: Spontaneous
  Country: DE (occurrence: DE)
  Receive Date: 20180301
  Receipt Date: 20180316
  Transmission Date: 20180509
  Serious: Yes (Life-Threatening, Hospitalization, Other)
  Sender: FDA-Public Use
  Company Number: DE-PFIZER INC-2017369540

PATIENT
  Age: 68 Year
  Sex: Male

DRUGS (8)
  1. FERRO-SANOL DUODENAL [Concomitant]
     Active Substance: FERROUS GLYCINE SULFATE
     Dosage: UNK
  2. BISOPROLOL [Concomitant]
     Active Substance: BISOPROLOL
     Dosage: UNK
  3. CORDAREX [Suspect]
     Active Substance: AMIODARONE
     Indication: VENTRICULAR TACHYCARDIA
     Dosage: 200 MG, 1X/DAY
     Route: 048
     Dates: start: 20170725, end: 20170808
  4. ENTRESTO [Suspect]
     Active Substance: SACUBITRIL\VALSARTAN
     Indication: ISCHAEMIC CARDIOMYOPATHY
     Dosage: 1 DF, 2X/DAY
     Route: 048
     Dates: start: 20170725, end: 20170808
  5. XARELTO [Concomitant]
     Active Substance: RIVAROXABAN
     Dosage: UNK
  6. AMARYL [Concomitant]
     Active Substance: GLIMEPIRIDE
     Dosage: UNK
  7. INSPRA [Concomitant]
     Active Substance: EPLERENONE
     Dosage: UNK
  8. TOREM [Concomitant]
     Active Substance: TORSEMIDE
     Dosage: UNK

REACTIONS (17)
  - Abdominal distension [Unknown]
  - Nausea [Not Recovered/Not Resolved]
  - Oedema peripheral [Unknown]
  - Hepatic failure [Recovering/Resolving]
  - Hepatic function abnormal [Recovering/Resolving]
  - Acute kidney injury [Recovering/Resolving]
  - Visual impairment [Unknown]
  - Blood creatinine increased [Unknown]
  - Palpitations [Recovered/Resolved]
  - Cardiac failure [Recovering/Resolving]
  - Enuresis [Recovered/Resolved]
  - Nasopharyngitis [Recovered/Resolved]
  - Fear [Recovered/Resolved]
  - Ventricular tachycardia [Recovered/Resolved]
  - Dizziness [Not Recovered/Not Resolved]
  - Dyspnoea exertional [Recovering/Resolving]
  - Transaminases increased [Recovering/Resolving]

NARRATIVE: CASE EVENT DATE: 2017
